FAERS Safety Report 4492175-3 (Version None)
Quarter: 2004Q4

REPORT INFORMATION
  Report Type: 
  Country: None (occurrence: None)
  Receive Date: 20041103
  Receipt Date: 20041025
  Transmission Date: 20050328
  Serious: Yes (Death, Hospitalization)
  Sender: FDA-Public Use
  Company Number: DE-GLAXOSMITHKLINE-D0045026A

PATIENT
  Age: 38 Year
  Sex: Female

DRUGS (10)
  1. LAMICTAL [Suspect]
     Indication: EPILEPSY
     Dosage: 50MG PER DAY
     Route: 048
     Dates: start: 20040401, end: 20040909
  2. REMERGIL [Concomitant]
     Indication: DEPRESSION
     Dosage: 30MG PER DAY
     Route: 048
     Dates: start: 20031201
  3. PARACETAMOL [Concomitant]
     Route: 065
  4. TRAMAL [Concomitant]
     Route: 065
  5. ZOLPIDEM TARTRATE [Concomitant]
     Route: 065
  6. PAIN MEDICATION (UNSPECIFIED) [Concomitant]
     Route: 065
  7. MELPERON [Concomitant]
     Indication: RESTLESSNESS
     Dosage: 25MG PER DAY
     Route: 048
     Dates: start: 20040401
  8. FRISIUM [Concomitant]
     Indication: EPILEPSY
     Dosage: 10MG TWICE PER DAY
     Route: 048
     Dates: start: 20040401
  9. CONVULSOFIN [Concomitant]
     Indication: EPILEPSY
     Route: 048
  10. CARBAMAZEPINE [Concomitant]
     Indication: EPILEPSY
     Route: 065

REACTIONS (2)
  - HEPATIC FAILURE [None]
  - TREATMENT NONCOMPLIANCE [None]
